FAERS Safety Report 5386800-2 (Version None)
Quarter: 2007Q3

REPORT INFORMATION
  Report Type: 
  Country: None (occurrence: None)
  Receive Date: 20070713
  Receipt Date: 20070702
  Transmission Date: 20080115
  Serious: Yes (Hospitalization, Other)
  Sender: FDA-Public Use
  Company Number: US-PFIZER INC-2006141171

PATIENT
  Sex: Female
  Weight: 141.1 kg

DRUGS (2)
  1. CELEBREX [Suspect]
     Indication: ARTHRITIS
     Dosage: TEXT:100 OR 200MG-FREQ:TWICE
     Dates: start: 20000801, end: 20020401
  2. CELEBREX [Suspect]
     Indication: BACK PAIN

REACTIONS (4)
  - CARDIAC FAILURE CONGESTIVE [None]
  - CARDIOVASCULAR DISORDER [None]
  - PULMONARY EMBOLISM [None]
  - THROMBOSIS [None]
